FAERS Safety Report 8370825-9 (Version None)
Quarter: 2012Q2

REPORT INFORMATION
  Report Type: 
  Country: None (occurrence: None)
  Receive Date: 20120518
  Receipt Date: 20111011
  Transmission Date: 20120825
  Serious: No
  Sender: FDA-Public Use
  Company Number: US-ASTRAZENECA-2011SE69676

PATIENT
  Sex: Female

DRUGS (2)
  1. PRILOSEC OTC [Suspect]
     Route: 048
  2. SYNTHROID [Concomitant]
     Dosage: UNKNOWN

REACTIONS (2)
  - EXPIRED DRUG ADMINISTERED [None]
  - GASTRIC POLYPS [None]
